FAERS Safety Report 23650391 (Version 1)
Quarter: 2024Q1

REPORT INFORMATION
  Report Type: Spontaneous
  Country: US (occurrence: None)
  Receive Date: 20240320
  Receipt Date: 20240320
  Transmission Date: 20240409
  Serious: No
  Sender: FDA-Public Use
  Company Number: US-ROCHE-3426618

PATIENT
  Age: 74 Year
  Sex: Male

DRUGS (2)
  1. VABYSMO [Suspect]
     Active Substance: FARICIMAB\FARICIMAB-SVOA
     Indication: Diabetic retinal oedema
     Route: 065
     Dates: start: 20230817
  2. VABYSMO [Suspect]
     Active Substance: FARICIMAB\FARICIMAB-SVOA
     Indication: Diabetic retinopathy

REACTIONS (1)
  - Petechiae [Unknown]
